FAERS Safety Report 11212908 (Version 1)
Quarter: 2015Q2

REPORT INFORMATION
  Report Type: Report from Study
  Country: CA (occurrence: CA)
  Receive Date: 20150623
  Receipt Date: 20150623
  Transmission Date: 20150821
  Serious: Yes (Death, Hospitalization, Other)
  Sender: FDA-Public Use
  Company Number: CA-ABBVIE-11P-028-0719639-00

PATIENT
  Sex: Female

DRUGS (1)
  1. HUMIRA [Suspect]
     Active Substance: ADALIMUMAB
     Indication: CROHN^S DISEASE
     Route: 058
     Dates: start: 20040715

REACTIONS (8)
  - Infection [Unknown]
  - Neoplasm malignant [Not Recovered/Not Resolved]
  - Sinusitis [Unknown]
  - Malignant peritoneal neoplasm [Not Recovered/Not Resolved]
  - Immune system disorder [Unknown]
  - Immunosuppression [Unknown]
  - Endometrial cancer stage 0 [Unknown]
  - Death [Fatal]

NARRATIVE: CASE EVENT DATE: 2010
